FAERS Safety Report 11379769 (Version 1)
Quarter: 2015Q3

REPORT INFORMATION
  Report Type: Spontaneous
  Country: ES (occurrence: ES)
  Receive Date: 20150814
  Receipt Date: 20150814
  Transmission Date: 20151125
  Serious: Yes (Hospitalization, Other)
  Sender: FDA-Public Use
  Company Number: ES-ASTRAZENECA-2015SE77689

PATIENT
  Age: 67 Year
  Sex: Female

DRUGS (2)
  1. LINAGLIPTINE [Interacting]
     Active Substance: LINAGLIPTIN
     Dosage: LATENCY: YEARS
     Route: 065
     Dates: start: 201506, end: 20150713
  2. BYDUREON [Suspect]
     Active Substance: EXENATIDE
     Dosage: LATENCY: YEARS; 2 MG; 4 PENS PREFILLED IN A SINGLE DOSE
     Route: 058
     Dates: start: 2014, end: 20150713

REACTIONS (3)
  - Drug interaction [Unknown]
  - Pancreatitis [Recovered/Resolved]
  - Drug prescribing error [Recovered/Resolved]

NARRATIVE: CASE EVENT DATE: 20150713
